FAERS Safety Report 20319494 (Version 2)
Quarter: 2022Q1

REPORT INFORMATION
  Report Type: Spontaneous
  Country: US (occurrence: US)
  Receive Date: 20220110
  Receipt Date: 20220113
  Transmission Date: 20220423
  Serious: Yes (Other)
  Sender: FDA-Public Use
  Company Number: US-BAXTER-2022BAX000132

PATIENT
  Sex: Female

DRUGS (1)
  1. ARTISS [Suspect]
     Active Substance: FIBRINOGEN HUMAN\THROMBIN HUMAN
     Indication: Face lift
     Route: 065
     Dates: start: 20211118, end: 20211118

REACTIONS (3)
  - Haemorrhage [Recovering/Resolving]
  - Petechiae [Recovering/Resolving]
  - Skin disorder [Recovering/Resolving]
